FAERS Safety Report 5850430-6 (Version None)
Quarter: 2008Q3

REPORT INFORMATION
  Report Type: 
  Country: None (occurrence: None)
  Receive Date: 20080819
  Receipt Date: 20080808
  Transmission Date: 20090109
  Serious: Yes (Other)
  Sender: FDA-Public Use
  Company Number: JP-PFIZER INC-2008063749

PATIENT
  Age: 37 Year
  Sex: Male

DRUGS (3)
  1. SOLU-MEDROL [Suspect]
     Indication: HEPATITIS FULMINANT
     Route: 042
  2. CYCLOSPORINE [Concomitant]
     Route: 048
  3. INTERFERON [Concomitant]
     Route: 042

REACTIONS (1)
  - BRONCHOPULMONARY ASPERGILLOSIS [None]
